FAERS Safety Report 16846269 (Version 1)
Quarter: 2019Q3

REPORT INFORMATION
  Report Type: Spontaneous
  Country: US (occurrence: US)
  Receive Date: 20190924
  Receipt Date: 20190924
  Transmission Date: 20191005
  Serious: No
  Sender: FDA-Public Use
  Company Number: US-SA-2019SA262299

PATIENT
  Sex: Male

DRUGS (2)
  1. DUPIXENT [Suspect]
     Active Substance: DUPILUMAB
     Indication: ECZEMA
     Dosage: UNK
     Dates: start: 201908, end: 201908
  2. DUPIXENT [Suspect]
     Active Substance: DUPILUMAB
     Dosage: 300 MG, QOW

REACTIONS (7)
  - Hyperhidrosis [Unknown]
  - Pruritus [Unknown]
  - Dry eye [Unknown]
  - Drug ineffective [Unknown]
  - Dry skin [Unknown]
  - Gynaecomastia [Unknown]
  - Eye pruritus [Unknown]
